FAERS Safety Report 25031634 (Version 1)
Quarter: 2025Q1

REPORT INFORMATION
  Report Type: Spontaneous
  Country: JP (occurrence: JP)
  Receive Date: 20250303
  Receipt Date: 20250303
  Transmission Date: 20250409
  Serious: Yes (Other)
  Sender: MERCK SHARP & DOHME LLC
  Company Number: JP-MSD-2411JPN000363J

PATIENT
  Age: 76 Year
  Sex: Male

DRUGS (3)
  1. KEYTRUDA [Suspect]
     Active Substance: PEMBROLIZUMAB
     Indication: Lung squamous cell carcinoma stage IV
     Route: 065
     Dates: start: 202202
  2. CARBOPLATIN [Suspect]
     Active Substance: CARBOPLATIN
     Indication: Lung squamous cell carcinoma stage IV
     Route: 065
  3. PACLITAXEL [Suspect]
     Active Substance: PACLITAXEL
     Indication: Lung squamous cell carcinoma stage IV
     Route: 065
     Dates: start: 202202

REACTIONS (3)
  - Immune-mediated renal disorder [Unknown]
  - Malignant neoplasm progression [Unknown]
  - Pyrexia [Unknown]
